FAERS Safety Report 24877239 (Version 1)
Quarter: 2025Q1

REPORT INFORMATION
  Report Type: Spontaneous
  Country: US (occurrence: US)
  Receive Date: 20250123
  Receipt Date: 20250123
  Transmission Date: 20250409
  Serious: Yes (Other)
  Sender: BIONPHARMA INC.
  Company Number: US-Bion-014674

PATIENT

DRUGS (1)
  1. ATOVAQUONE [Suspect]
     Active Substance: ATOVAQUONE
     Indication: Product used for unknown indication

REACTIONS (6)
  - Product contamination microbial [Unknown]
  - Oedema [Unknown]
  - Nausea [Unknown]
  - Recalled product administered [Unknown]
  - Asthenia [Unknown]
  - Rash [Unknown]
